FAERS Safety Report 11518193 (Version 3)
Quarter: 2015Q4

REPORT INFORMATION
  Report Type: Report from Study
  Country: BR (occurrence: BR)
  Receive Date: 20150917
  Receipt Date: 20151224
  Transmission Date: 20160304
  Serious: Yes (Hospitalization, Other)
  Sender: FDA-Public Use
  Company Number: PHHY2015BR111748

PATIENT
  Age: 24 Year
  Sex: Female
  Weight: 57 kg

DRUGS (6)
  1. EXJADE [Suspect]
     Active Substance: DEFERASIROX
     Indication: SICKLE CELL ANAEMIA
     Dosage: 3 DF, UNK
     Route: 065
  2. HYDREA [Concomitant]
     Active Substance: HYDROXYUREA
     Indication: PROPHYLAXIS
     Dosage: 2 DF OF 500 MG, QD
     Route: 048
  3. FOLIC ACID. [Concomitant]
     Active Substance: FOLIC ACID
     Indication: HYPOVITAMINOSIS
     Dosage: 1 DF OF 5 MG, QD
     Route: 048
  4. EXJADE [Suspect]
     Active Substance: DEFERASIROX
     Dosage: 3 TABLETS OF 500 MG ON ONE DAY AND 4 TABLETS OF 500 MG ON THE OTHER (ALTERNATE DAYS)
     Route: 065
  5. EXJADE [Suspect]
     Active Substance: DEFERASIROX
     Dosage: 03 TABLETS TWICE A WEEK, AND 02 TABLETS THE REST OF THE WEEK
     Route: 048
  6. CEBRALAT [Concomitant]
     Active Substance: CILOSTAZOL
     Indication: CEREBROVASCULAR ACCIDENT
     Dosage: 2 DF, QD
     Route: 048

REACTIONS (5)
  - Blood iron increased [Unknown]
  - Nail infection [Recovered/Resolved]
  - Sickle cell anaemia with crisis [Recovered/Resolved]
  - Porphyria [Unknown]
  - Localised infection [Unknown]

NARRATIVE: CASE EVENT DATE: 201508
